FAERS Safety Report 8326185-2 (Version None)
Quarter: 2012Q2

REPORT INFORMATION
  Report Type: 
  Country: None (occurrence: None)
  Receive Date: 20120427
  Receipt Date: 20120420
  Transmission Date: 20120825
  Serious: Yes (Death)
  Sender: FDA-Public Use
  Company Number: 2012040130

PATIENT
  Age: 51 Year
  Sex: Male

DRUGS (5)
  1. MEPROBAMATE [Suspect]
  2. MEPERIDINE (MEPERIDINE) [Suspect]
  3. OXYCODONE HCL [Suspect]
  4. DIAZEPAM [Suspect]
  5. CARISOPRODOL (CARISOPRODOL) [Suspect]

REACTIONS (1)
  - TOXICITY TO VARIOUS AGENTS [None]
